FAERS Safety Report 5262338-8 (Version None)
Quarter: 2007Q1

REPORT INFORMATION
  Report Type: 
  Country: None (occurrence: None)
  Receive Date: 20061208
  Receipt Date: 20060823
  Transmission Date: 20070707
  Serious: Yes (Other)
  Sender: FDA-Public Use
  Company Number: USA-2006-0025071

PATIENT
  Age: 87 Year
  Sex: Male

DRUGS (1)
  1. OXYCONTIN [Suspect]
     Indication: DRUG USE FOR UNKNOWN INDICATION
     Dosage: 10 MG, BID

REACTIONS (6)
  - ANTISOCIAL BEHAVIOUR [None]
  - DEHYDRATION [None]
  - DEPRESSION [None]
  - DIET REFUSAL [None]
  - DRUG WITHDRAWAL SYNDROME [None]
  - TREMOR [None]
